FAERS Safety Report 17487684 (Version 1)
Quarter: 2020Q1

REPORT INFORMATION
  Report Type: Spontaneous
  Country: US (occurrence: US)
  Receive Date: 20200303
  Receipt Date: 20200303
  Transmission Date: 20200409
  Serious: Yes (Other)
  Sender: FDA-Public Use
  Company Number: US-GLAXOSMITHKLINE-US2020036614

PATIENT
  Age: 70 Year
  Sex: Female

DRUGS (2)
  1. SENSODYNE [Suspect]
     Active Substance: POTASSIUM NITRATE\SODIUM FLUORIDE
     Indication: HYPERAESTHESIA TEETH
     Dosage: UNK
  2. SENSODYNE PRONAMEL GENTLE WHITENING [Suspect]
     Active Substance: POTASSIUM NITRATE\SODIUM FLUORIDE
     Indication: HYPERAESTHESIA TEETH
     Dosage: UNK
     Dates: start: 20191227

REACTIONS (5)
  - Glossitis [Recovered/Resolved]
  - Oral discomfort [Recovered/Resolved]
  - Gingival discomfort [Recovered/Resolved]
  - Stomatitis [Recovered/Resolved]
  - Angina bullosa haemorrhagica [Recovered/Resolved]

NARRATIVE: CASE EVENT DATE: 20200127
